FAERS Safety Report 22020740 (Version 1)
Quarter: 2023Q1

REPORT INFORMATION
  Report Type: Spontaneous
  Country: US (occurrence: US)
  Receive Date: 20230222
  Receipt Date: 20230222
  Transmission Date: 20230418
  Serious: No
  Sender: FDA-Public Use
  Company Number: US-PFIZER INC-PV202300033948

PATIENT
  Age: 75 Year
  Sex: Male

DRUGS (5)
  1. EUCRISA [Suspect]
     Active Substance: CRISABOROLE
     Indication: Dermatitis atopic
     Dosage: UNK
     Route: 061
  2. EUCRISA [Suspect]
     Active Substance: CRISABOROLE
     Indication: Rash erythematous
  3. EUCRISA [Suspect]
     Active Substance: CRISABOROLE
     Indication: Eczema
  4. EUCRISA [Suspect]
     Active Substance: CRISABOROLE
     Indication: Lichenification
  5. PROTOPIC [Suspect]
     Active Substance: TACROLIMUS
     Dosage: UNK
     Route: 061

REACTIONS (2)
  - Treatment failure [Unknown]
  - Condition aggravated [Unknown]
